FAERS Safety Report 13895517 (Version 1)
Quarter: 2017Q3

REPORT INFORMATION
  Report Type: Spontaneous
  Country: US (occurrence: US)
  Receive Date: 20170823
  Receipt Date: 20170823
  Transmission Date: 20171127
  Serious: No
  Sender: FDA-Public Use
  Company Number: US-PFIZER INC-2017357842

PATIENT
  Age: 69 Year
  Sex: Female

DRUGS (4)
  1. VITAMIN B12 [Concomitant]
     Active Substance: CYANOCOBALAMIN
     Dosage: UNK
  2. CALCIUM [Suspect]
     Active Substance: CALCIUM
     Dosage: 600 MG, UNK, (2 CALCIUM  600 PER DAY)
  3. LOSARTAN POTASSIUM. [Concomitant]
     Active Substance: LOSARTAN POTASSIUM
     Dosage: 50 MG, UNK
  4. SUTENT [Suspect]
     Active Substance: SUNITINIB MALATE
     Indication: MALIGNANT NEOPLASM OF RENAL PELVIS
     Dosage: 25 MG, CYCLIC (ONCE A DAY FOR 4 WEEKS ON AND THEN 2 WEEKS OFF)
     Route: 048

REACTIONS (3)
  - Diarrhoea [Unknown]
  - Muscle spasms [Unknown]
  - Abdominal pain upper [Unknown]
